FAERS Safety Report 4287789-X (Version None)
Quarter: 2004Q1

REPORT INFORMATION
  Report Type: 
  Country: None (occurrence: None)
  Receive Date: 20040209
  Receipt Date: 20030924
  Transmission Date: 20041129
  Serious: No
  Sender: FDA-Public Use
  Company Number: US-GLAXOSMITHKLINE-A0427375A

PATIENT
  Age: 37 Year
  Sex: Female

DRUGS (1)
  1. PAXIL [Suspect]
     Dosage: 25MG PER DAY
     Route: 048

REACTIONS (1)
  - SEXUAL DYSFUNCTION [None]
